FAERS Safety Report 8294815-X (Version None)
Quarter: 2012Q2

REPORT INFORMATION
  Report Type: 
  Country: None (occurrence: None)
  Receive Date: 20120418
  Receipt Date: 20120403
  Transmission Date: 20120825
  Serious: Yes (Hospitalization)
  Sender: FDA-Public Use
  Company Number: JP-AMGEN-JPNSP2011054754

PATIENT
  Age: 70 Year
  Sex: Female
  Weight: 40 kg

DRUGS (12)
  1. RHEUMATREX [Suspect]
     Dosage: 8 MG, WEEKLY
     Route: 048
     Dates: start: 20110222, end: 20110908
  2. TORSEMIDE [Concomitant]
     Dosage: 4 MG/DAY
     Route: 048
     Dates: end: 20110915
  3. ROCALTROL [Concomitant]
     Indication: PROPHYLAXIS
     Dosage: 0.5 MG/DAY
     Route: 048
     Dates: end: 20110915
  4. ISONIAZID [Concomitant]
     Dosage: 300 MG/DAY
     Route: 048
     Dates: end: 20110915
  5. PREDNISOLONE [Concomitant]
     Indication: RHEUMATOID ARTHRITIS
     Dosage: 4 MG/DAY
     Route: 048
     Dates: end: 20110917
  6. TOLTERODINE TARTRATE [Concomitant]
     Indication: POLLAKIURIA
     Dosage: 4 MG/DAY
     Route: 048
  7. RHEUMATREX [Suspect]
     Indication: RHEUMATOID ARTHRITIS
     Dosage: 6 MG, WEEKLY
     Route: 048
     Dates: start: 20110125, end: 20110221
  8. LANSOPRAZOLE [Concomitant]
     Indication: PROPHYLAXIS
     Dosage: 15 MG/DAY
     Route: 048
  9. HYPEN                              /00613801/ [Concomitant]
     Indication: PAIN
     Dosage: 400 MG/DAY
     Route: 048
  10. ENBREL [Suspect]
     Indication: RHEUMATOID ARTHRITIS
     Dosage: 25 MG, WEEKLY
     Route: 058
     Dates: start: 20110513, end: 20110908
  11. FOLIAMIN [Concomitant]
     Indication: RHEUMATOID ARTHRITIS
     Dosage: 5 MG, WEEKLY
     Route: 048
     Dates: start: 20110125, end: 20110908
  12. RISEDRONATE SODIUM [Concomitant]
     Indication: PROPHYLAXIS
     Dosage: 17.5 MG, WEEKLY
     Route: 048

REACTIONS (1)
  - LUNG DISORDER [None]
